FAERS Safety Report 17120747 (Version 1)
Quarter: 2019Q4

REPORT INFORMATION
  Report Type: Spontaneous
  Country: JP (occurrence: JP)
  Receive Date: 20191206
  Receipt Date: 20191206
  Transmission Date: 20200122
  Serious: Yes (Other)
  Sender: FDA-Public Use
  Company Number: JP-ELI_LILLY_AND_COMPANY-JP201505008986

PATIENT
  Age: 75 Year
  Sex: Male

DRUGS (1)
  1. ZALUTIA 5MG [Suspect]
     Active Substance: TADALAFIL
     Indication: BENIGN PROSTATIC HYPERPLASIA
     Dosage: 5 MG, QD
     Route: 048
     Dates: start: 20150113, end: 201911

REACTIONS (8)
  - Prostatic specific antigen increased [Unknown]
  - Visual acuity reduced [Unknown]
  - Eye discharge [Unknown]
  - Taste disorder [Unknown]
  - Hyposmia [Unknown]
  - Photopsia [Unknown]
  - Tinnitus [Not Recovered/Not Resolved]
  - Prostate cancer [Unknown]

NARRATIVE: CASE EVENT DATE: 201503
